FAERS Safety Report 6719956-7 (Version None)
Quarter: 2010Q2

REPORT INFORMATION
  Report Type: 
  Country: None (occurrence: None)
  Receive Date: 20100511
  Receipt Date: 20100429
  Transmission Date: 20101027
  Serious: Yes (Hospitalization)
  Sender: FDA-Public Use
  Company Number: FR-ELI_LILLY_AND_COMPANY-FR201004008090

PATIENT
  Age: 68 Year
  Sex: Male

DRUGS (8)
  1. UMULINE 30% REGULAR, 70% NPH [Suspect]
     Indication: DIABETES MELLITUS
     Dosage: UNK, UNKNOWN
     Route: 058
     Dates: start: 20090201, end: 20090701
  2. UMULINE 30% REGULAR, 70% NPH [Suspect]
     Dosage: UNK, UNKNOWN
     Route: 058
     Dates: start: 20090901, end: 20100210
  3. METFORMIN HCL [Concomitant]
     Dosage: UNK, UNKNOWN
     Route: 065
  4. GLYBURIDE [Concomitant]
     Dosage: 5 MG, UNKNOWN
     Route: 048
  5. ZOCOR [Concomitant]
     Dosage: 40 MG, UNKNOWN
     Route: 048
  6. EFFEXOR [Concomitant]
     Dosage: UNK, UNKNOWN
     Route: 048
  7. LYSANXIA [Concomitant]
     Dosage: UNK, UNKNOWN
     Route: 048
  8. ZOLPIDEM [Concomitant]
     Dosage: UNK, UNKNOWN
     Route: 065

REACTIONS (1)
  - ERYTHRODERMIC PSORIASIS [None]
